FAERS Safety Report 5578549-8 (Version None)
Quarter: 2007Q4

REPORT INFORMATION
  Report Type: 
  Country: None (occurrence: None)
  Receive Date: 20071227
  Receipt Date: 20071211
  Transmission Date: 20080405
  Serious: Yes (Hospitalization)
  Sender: FDA-Public Use
  Company Number: 2007JP005059

PATIENT
  Age: 76 Year
  Sex: Female
  Weight: 47 kg

DRUGS (14)
  1. VESICARE [Suspect]
     Indication: HYPERTONIC BLADDER
     Dosage: 5 MG, UID/QD, ORAL
     Route: 048
     Dates: start: 20070925, end: 20071021
  2. BLOPRESS(CANDESARTAN CILEXETIL) TABLET, 8MG [Suspect]
     Indication: HYPERTENSION
     Dosage: 8 MG, UID/QD, ORAL
     Route: 048
     Dates: start: 20070927, end: 20071022
  3. BLOPRESS(CANDESARTAN CILEXETIL) TABLET, 8MG [Suspect]
     Indication: HYPERTENSION
     Dosage: 8 MG, UID/QD, ORAL
     Route: 048
     Dates: start: 20071106
  4. BEPRICOR(BEPRIDIL) TABLET, 50MG [Suspect]
     Indication: ATRIAL FIBRILLATION
     Dosage: 50 MG, BID, ORAL
     Route: 048
     Dates: start: 20070927, end: 20071022
  5. BEPRICOR(BEPRIDIL) TABLET, 50MG [Suspect]
     Indication: ATRIAL FIBRILLATION
     Dosage: 50 MG, BID, ORAL
     Route: 048
     Dates: start: 20071031
  6. BONALON (ALENDRONIC ACID) TABLET, 5 MG [Concomitant]
  7. WARFARIN POTASSIUM (WARFARIN POTASSIUM) TABLET, 2 MG [Concomitant]
  8. DEPAS (ETIZOLAM) TABLET, 0.5 MG [Concomitant]
  9. BAYASPIRIN TABLET, 100 MG [Concomitant]
  10. ARTIST (CARVEDILOL) TABLET, 2.5 MG [Concomitant]
  11. THYRADIN S (LEVOTHYROXINE SODIUM) TABLET, 50 UG [Concomitant]
  12. RENIVEZE (ENALAPRIL MALEATE) TABLET, 5 MG [Concomitant]
  13. SUNRYTHM (PILSICAINIDE  HYDROCHLORIDE) CAPSULE, 25 MG [Concomitant]
  14. ZOPICLONE (ZOPICLONE) TABLET, 7.5 MG [Concomitant]

REACTIONS (6)
  - ALCOHOL USE [None]
  - DIZZINESS [None]
  - DIZZINESS POSTURAL [None]
  - FEELING ABNORMAL [None]
  - HEPATIC FUNCTION ABNORMAL [None]
  - VOMITING [None]
